FAERS Safety Report 7553963-X (Version None)
Quarter: 2011Q2

REPORT INFORMATION
  Report Type: 
  Country: None (occurrence: None)
  Receive Date: 20110614
  Receipt Date: 20110614
  Transmission Date: 20111010
  Serious: Yes (Hospitalization)
  Sender: FDA-Public Use
  Company Number: None

PATIENT
  Sex: Female
  Weight: 130.8 kg

DRUGS (8)
  1. FAMOTIDINE [Concomitant]
  2. CARBOPLATIN [Suspect]
     Dosage: 0 MG
  3. DEXAMETHASONE [Concomitant]
  4. ONDANSETRON [Concomitant]
  5. TAXOL [Suspect]
     Dosage: 29.4 MG
     Dates: end: 20101021
  6. DOCUSATE SODIUM [Concomitant]
  7. MORPHINE SULFATE [Concomitant]
  8. DIPHENHYDRAMINE HCL [Concomitant]

REACTIONS (4)
  - DYSPNOEA [None]
  - INFUSION RELATED REACTION [None]
  - APNOEA [None]
  - UNRESPONSIVE TO STIMULI [None]
